FAERS Safety Report 23856895 (Version 4)
Quarter: 2025Q2

REPORT INFORMATION
  Report Type: Spontaneous
  Country: US (occurrence: US)
  Receive Date: 20240515
  Receipt Date: 20250608
  Transmission Date: 20250717
  Serious: No
  Sender: COHERUS
  Company Number: US-Coherus Biosciences, Inc.-2024-COH-US000268

PATIENT

DRUGS (1)
  1. UDENYCA [Suspect]
     Active Substance: PEGFILGRASTIM-CBQV
     Indication: Product used for unknown indication
     Route: 058

REACTIONS (3)
  - Device adhesion issue [Unknown]
  - Device malfunction [Unknown]
  - Wrong technique in device usage process [Unknown]
